FAERS Safety Report 12631858 (Version 2)
Quarter: 2016Q3

REPORT INFORMATION
  Report Type: Spontaneous
  Country: US (occurrence: US)
  Receive Date: 20160808
  Receipt Date: 20160808
  Transmission Date: 20161109
  Serious: No
  Sender: FDA-Public Use
  Company Number: US-BEH-2016061266

PATIENT
  Sex: Female
  Weight: 62 kg

DRUGS (15)
  1. PROBIOTICA [Concomitant]
     Active Substance: PROBIOTICS NOS
  2. HIZENTRA [Suspect]
     Active Substance: HUMAN IMMUNOGLOBULIN G
     Route: 058
  3. IBUPROFEN. [Concomitant]
     Active Substance: IBUPROFEN
  4. AUGMENTIN [Concomitant]
     Active Substance: AMOXICILLIN\CLAVULANATE POTASSIUM
  5. EPIPEN [Concomitant]
     Active Substance: EPINEPHRINE
  6. MULTIVITAMINS [Concomitant]
     Active Substance: VITAMINS
  7. ACETAMINOPHEN. [Concomitant]
     Active Substance: ACETAMINOPHEN
  8. LIDOCAINE/PRILOCAINE [Concomitant]
     Active Substance: LIDOCAINE\PRILOCAINE
  9. DIPHENHYDRAMINE. [Concomitant]
     Active Substance: DIPHENHYDRAMINE
  10. HIZENTRA [Suspect]
     Active Substance: HUMAN IMMUNOGLOBULIN G
     Route: 058
  11. HIZENTRA [Suspect]
     Active Substance: HUMAN IMMUNOGLOBULIN G
     Indication: IMMUNODEFICIENCY COMMON VARIABLE
     Route: 058
  12. LIDOCAINE. [Concomitant]
     Active Substance: LIDOCAINE
  13. QVAR [Concomitant]
     Active Substance: BECLOMETHASONE DIPROPIONATE
  14. VENTOLIN [Concomitant]
     Active Substance: ALBUTEROL SULFATE
  15. DYMISTA [Concomitant]
     Active Substance: AZELASTINE HYDROCHLORIDE\FLUTICASONE PROPIONATE

REACTIONS (2)
  - Administration site erythema [Unknown]
  - Headache [Unknown]
